FAERS Safety Report 6029927-4 (Version None)
Quarter: 2008Q4

REPORT INFORMATION
  Report Type: 
  Country: None (occurrence: None)
  Receive Date: 20081222
  Receipt Date: 20080924
  Transmission Date: 20090506
  Serious: No
  Sender: FDA-Public Use
  Company Number: US-WYE-H06139408

PATIENT
  Age: 73 Year
  Sex: Female

DRUGS (4)
  1. PRISTIQ [Suspect]
     Indication: DEPRESSION
     Dosage: 50 MG 1X PER 1 DAY, ORAL
     Route: 048
     Dates: start: 20080919
  2. AMBIEN [Concomitant]
  3. CORGARD [Concomitant]
  4. COZAAR [Concomitant]

REACTIONS (2)
  - POOR QUALITY SLEEP [None]
  - SOMNOLENCE [None]
